FAERS Safety Report 8017418-0 (Version None)
Quarter: 2012Q1

REPORT INFORMATION
  Report Type: 
  Country: None (occurrence: None)
  Receive Date: 20120102
  Receipt Date: 20110725
  Transmission Date: 20120608
  Serious: Yes (Other)
  Sender: FDA-Public Use
  Company Number: PHFR2011GB006671

PATIENT
  Sex: Male

DRUGS (2)
  1. PROPRANOLOL [Concomitant]
  2. CLOZARIL [Suspect]
     Indication: SCHIZOPHRENIA
     Route: 048
     Dates: start: 20051102

REACTIONS (2)
  - HYPERTHYROIDISM [None]
  - THYROID FUNCTION TEST ABNORMAL [None]
